FAERS Safety Report 8907282 (Version 1)
Quarter: 2012Q4

REPORT INFORMATION
  Report Type: 
  Country: US (occurrence: US)
  Receive Date: 20121114
  Receipt Date: 20121114
  Transmission Date: 20130627
  Serious: No
  Sender: FDA-Public Use
  Company Number: US-009507513-1211USA005571

PATIENT
  Sex: Male

DRUGS (4)
  1. PEGINTRON [Suspect]
     Indication: HEPATITIS C
     Dosage: UNK
     Dates: start: 20121102
  2. RIBAVIRIN [Suspect]
     Indication: HEPATITIS C
     Dosage: UNK
     Dates: start: 20121102
  3. RAMIPRIL [Concomitant]
     Indication: HYPERTENSION
     Dosage: 10 mg, qm
  4. FENOFIBRATE [Concomitant]
     Dosage: 54 mg

REACTIONS (3)
  - Pain [Unknown]
  - Chills [Unknown]
  - Pyrexia [Unknown]
